FAERS Safety Report 6690161-6 (Version None)
Quarter: 2010Q2

REPORT INFORMATION
  Report Type: 
  Country: None (occurrence: None)
  Receive Date: 20100412
  Receipt Date: 20091211
  Transmission Date: 20101027
  Serious: No
  Sender: FDA-Public Use
  Company Number: 1000010748

PATIENT
  Age: 72 Year
  Sex: Female

DRUGS (11)
  1. BYSTOLIC [Suspect]
     Indication: EXTRASYSTOLES
     Dosage: 5 MG (5 MG, 1 IN 1 D), ORAL, 10 MG (10 MG, 1 IN 1 D), ORAL
     Route: 048
     Dates: start: 20080101, end: 20091208
  2. BYSTOLIC [Suspect]
     Indication: EXTRASYSTOLES
     Dosage: 5 MG (5 MG, 1 IN 1 D), ORAL, 10 MG (10 MG, 1 IN 1 D), ORAL
     Route: 048
     Dates: start: 20091209
  3. ZOLOFT [Suspect]
     Indication: DEPRESSION
     Dosage: 6.25 MG (6.25 MG, 1 IN 1 D), ORAL, 12.5 MG (12.5 MG, 1 IN 1 D), ORAL,  25 MG (25 MG, 1 IN 1 D), ORAL
     Route: 048
     Dates: start: 20091120, end: 20091121
  4. ZOLOFT [Suspect]
     Indication: DEPRESSION
     Dosage: 6.25 MG (6.25 MG, 1 IN 1 D), ORAL, 12.5 MG (12.5 MG, 1 IN 1 D), ORAL,  25 MG (25 MG, 1 IN 1 D), ORAL
     Route: 048
     Dates: start: 20091122, end: 20091123
  5. ZOLOFT [Suspect]
     Indication: DEPRESSION
     Dosage: 6.25 MG (6.25 MG, 1 IN 1 D), ORAL, 12.5 MG (12.5 MG, 1 IN 1 D), ORAL,  25 MG (25 MG, 1 IN 1 D), ORAL
     Route: 048
     Dates: start: 20091124, end: 20091124
  6. SYNTHROID (25 MICROGRAM, TABLETS) [Concomitant]
  7. BUTALBITAL (TABLETS) [Concomitant]
  8. BLUEBERRY EXTRACT [Concomitant]
  9. GINKO BILOBA [Concomitant]
  10. MULTI-VITAMIN [Concomitant]
  11. CALCIUM WITH VITAMIN D [Concomitant]

REACTIONS (2)
  - DRUG INEFFECTIVE [None]
  - EXTRASYSTOLES [None]
